FAERS Safety Report 9463174 (Version 2)
Quarter: 2013Q3

REPORT INFORMATION
  Report Type: Spontaneous
  Country: US (occurrence: US)
  Receive Date: 20130817
  Receipt Date: 20130925
  Transmission Date: 20140515
  Serious: Yes (Other)
  Sender: FDA-Public Use
  Company Number: US-JNJFOC-20130802739

PATIENT
  Age: 38 Year
  Sex: Female

DRUGS (10)
  1. EXTRA STRENGTH TYLENOL PM [Suspect]
     Indication: SLEEP DISORDER THERAPY
     Dosage: 20-40 PILLS
     Route: 048
     Dates: start: 201208, end: 20130312
  2. VITAMIN D [Concomitant]
     Indication: MALABSORPTION
     Dates: start: 2002
  3. DEXILANT [Concomitant]
     Indication: PAIN
     Route: 065
     Dates: start: 2012
  4. DEXILANT [Concomitant]
     Indication: NAUSEA
     Route: 065
     Dates: start: 2012
  5. IRON [Concomitant]
     Indication: MALABSORPTION
     Route: 065
     Dates: start: 2002
  6. MULTIVITAMINS [Concomitant]
     Indication: MALABSORPTION
     Route: 065
     Dates: start: 2002
  7. TRAZODONE [Concomitant]
     Indication: SLEEP DISORDER THERAPY
     Route: 065
     Dates: start: 2011
  8. ABILIFY [Concomitant]
     Indication: DEPRESSION
     Route: 065
     Dates: start: 2012
  9. BUDEPRION [Concomitant]
     Indication: DEPRESSION
     Route: 065
     Dates: start: 2012
  10. LEXAPRO [Concomitant]
     Indication: DEPRESSION
     Route: 065
     Dates: start: 2012

REACTIONS (4)
  - Drug dependence [Unknown]
  - Off label use [Unknown]
  - Depression [Unknown]
  - Gastric disorder [Recovered/Resolved]
